FAERS Safety Report 7447190-4 (Version None)
Quarter: 2011Q2

REPORT INFORMATION
  Report Type: 
  Country: None (occurrence: None)
  Receive Date: 20110429
  Receipt Date: 20110124
  Transmission Date: 20111010
  Serious: No
  Sender: FDA-Public Use
  Company Number: US-ASTRAZENECA-2010SE58316

PATIENT
  Age: 78 Year
  Sex: Female
  Weight: 77.1 kg

DRUGS (4)
  1. ACTOS [Concomitant]
     Indication: DIABETES MELLITUS
  2. NEXIUM [Suspect]
     Indication: ULCER HAEMORRHAGE
     Route: 048
     Dates: start: 20100101
  3. SYNTHROID [Concomitant]
  4. GLIMEPIRIDE [Concomitant]
     Indication: DIABETES MELLITUS

REACTIONS (4)
  - IRRITABLE BOWEL SYNDROME [None]
  - DRUG DOSE OMISSION [None]
  - WEIGHT INCREASED [None]
  - ABDOMINAL DISTENSION [None]
